FAERS Safety Report 5607602-5 (Version None)
Quarter: 2008Q1

REPORT INFORMATION
  Report Type: 
  Country: None (occurrence: None)
  Receive Date: 20080130
  Receipt Date: 20080116
  Transmission Date: 20080703
  Serious: Yes (Other)
  Sender: FDA-Public Use
  Company Number: PHHY2008CA00792

PATIENT
  Age: 33 Year
  Sex: Male

DRUGS (2)
  1. CLOZARIL [Suspect]
     Indication: PSYCHOTIC DISORDER
     Dosage: 50 MG
     Route: 048
     Dates: start: 20070214, end: 20080110
  2. ARTANE [Suspect]

REACTIONS (3)
  - DYSURIA [None]
  - POLLAKIURIA [None]
  - TREATMENT NONCOMPLIANCE [None]
